FAERS Safety Report 12379885 (Version 3)
Quarter: 2016Q2

REPORT INFORMATION
  Report Type: Spontaneous
  Country: US (occurrence: US)
  Receive Date: 20160518
  Receipt Date: 20160617
  Transmission Date: 20160815
  Serious: Yes (Other)
  Sender: FDA-Public Use
  Company Number: US-009507513-1605USA005080

PATIENT
  Sex: Female

DRUGS (10)
  1. VINCRISTINE SULFATE. [Suspect]
     Active Substance: VINCRISTINE SULFATE
     Indication: PROPHYLACTIC CHEMOTHERAPY
     Dosage: 4 CYCLES OF DOSE REDUCED MODIFIED REGIMEN
     Dates: start: 201403, end: 201501
  2. METHOTREXATE [Suspect]
     Active Substance: METHOTREXATE
     Indication: PROPHYLACTIC CHEMOTHERAPY
     Dosage: 4 CYCLES OF DOSE REDUCED MODIFIED REGIMEN
     Dates: start: 201403, end: 201501
  3. DOXORUBICIN [Suspect]
     Active Substance: DOXORUBICIN
     Indication: ACUTE LYMPHOCYTIC LEUKAEMIA
     Dosage: 4 CYCLES OF DOSE REDUCED MODIFIED REGIMEN
     Dates: start: 201403, end: 201501
  4. METHOTREXATE [Suspect]
     Active Substance: METHOTREXATE
     Indication: ACUTE LYMPHOCYTIC LEUKAEMIA
     Dosage: MAINTENANCE THERAPY
     Route: 048
     Dates: start: 201501, end: 201512
  5. CYTARABINE. [Suspect]
     Active Substance: CYTARABINE
     Indication: ACUTE LYMPHOCYTIC LEUKAEMIA
     Dosage: 4 CYCLES OF DOSE REDUCED MODIFIED REGIMEN
     Dates: start: 201403, end: 201501
  6. CYCLOPHOSPHAMIDE. [Suspect]
     Active Substance: CYCLOPHOSPHAMIDE
     Indication: ACUTE LYMPHOCYTIC LEUKAEMIA
     Dosage: 4 CYCLES OF DOSE REDUCED MODIFIED REGIMEN
     Dates: start: 201403, end: 201501
  7. VINCRISTINE SULFATE. [Suspect]
     Active Substance: VINCRISTINE SULFATE
     Indication: ACUTE LYMPHOCYTIC LEUKAEMIA
     Dosage: MAINTENANCE THERAPY
     Dates: start: 201501, end: 201512
  8. DEXAMETHASONE. [Suspect]
     Active Substance: DEXAMETHASONE
     Indication: ACUTE LYMPHOCYTIC LEUKAEMIA
     Dosage: 4 CYCLES OF DOSE REDUCED MODIFIED REGIMEN
     Route: 048
     Dates: start: 201403, end: 201506
  9. PREDNISONE. [Suspect]
     Active Substance: PREDNISONE
     Indication: PROPHYLACTIC CHEMOTHERAPY
     Dosage: MAINTENANCE THERAPY
     Route: 048
     Dates: start: 201501, end: 201512
  10. MERCAPTOPURINE. [Suspect]
     Active Substance: MERCAPTOPURINE
     Indication: PROPHYLACTIC CHEMOTHERAPY
     Dosage: MAINTENANCE THERAPY
     Dates: start: 201501, end: 201512

REACTIONS (4)
  - Neuropathy peripheral [Not Recovered/Not Resolved]
  - Acute lymphocytic leukaemia refractory [Not Recovered/Not Resolved]
  - Vocal cord paralysis [Unknown]
  - Acute lymphocytic leukaemia recurrent [Not Recovered/Not Resolved]

NARRATIVE: CASE EVENT DATE: 2015
